FAERS Safety Report 17510947 (Version 1)
Quarter: 2020Q1

REPORT INFORMATION
  Report Type: Spontaneous
  Country: US (occurrence: US)
  Receive Date: 20200306
  Receipt Date: 20200306
  Transmission Date: 20200409
  Serious: No
  Sender: FDA-Public Use
  Company Number: None

PATIENT
  Age: 22 Year
  Sex: Male
  Weight: 97.07 kg

DRUGS (9)
  1. BENZTROPINE. [Concomitant]
     Active Substance: BENZTROPINE
  2. FENOFIBRATE. [Concomitant]
     Active Substance: FENOFIBRATE
  3. SALICYLIC ACID TOPICAL SOAP [Concomitant]
  4. DIVALPROEX SODIUM ER [Concomitant]
     Active Substance: DIVALPROEX SODIUM
  5. CHOLECALCIFEROL [Concomitant]
     Active Substance: CHOLECALCIFEROL
  6. OLANZAPINE. [Suspect]
     Active Substance: OLANZAPINE
     Indication: IMPULSE-CONTROL DISORDER
     Route: 048
     Dates: start: 20180116, end: 20200226
  7. MOM [Concomitant]
     Active Substance: MAGNESIUM HYDROXIDE
  8. MICONAZOLE TOPICAL [Concomitant]
  9. ADAPALENE-BENZOYL PEROXIDE [Concomitant]
     Active Substance: ADAPALENE\BENZOYL PEROXIDE

REACTIONS (2)
  - Oculogyric crisis [None]
  - Gaze palsy [None]

NARRATIVE: CASE EVENT DATE: 20200226
